FAERS Safety Report 12284292 (Version 3)
Quarter: 2023Q2

REPORT INFORMATION
  Report Type: Other
  Country: PL (occurrence: None)
  Receive Date: 20160420
  Receipt Date: 20230510
  Transmission Date: 20230721
  Serious: Yes (Hospitalization)
  Sender: FDA-Public Use
  Company Number: PL-ROCHE-1743982

PATIENT
  Age: 12 Year
  Sex: Female
  Weight: 30 kg

DRUGS (14)
  1. SOMATROPIN [Suspect]
     Active Substance: SOMATROPIN
     Indication: Turner^s syndrome
     Route: 058
  2. SOMATROPIN [Suspect]
     Active Substance: SOMATROPIN
     Route: 058
  3. SOMATROPIN [Suspect]
     Active Substance: SOMATROPIN
     Route: 058
  4. SOMATROPIN [Suspect]
     Active Substance: SOMATROPIN
     Route: 058
  5. SOMATROPIN [Suspect]
     Active Substance: SOMATROPIN
     Route: 058
  6. SOMATROPIN [Suspect]
     Active Substance: SOMATROPIN
     Route: 058
  7. LEVOTHYROXINE [Concomitant]
     Active Substance: LEVOTHYROXINE
     Indication: Blood thyroid stimulating hormone increased
  8. INSULIN HUMAN [Concomitant]
     Active Substance: INSULIN HUMAN
     Indication: Type 1 diabetes mellitus
     Route: 065
  9. ACTRAPID [Concomitant]
     Active Substance: INSULIN HUMAN
     Indication: Type 1 diabetes mellitus
     Route: 065
  10. INSULIN ASPART [Concomitant]
     Active Substance: INSULIN ASPART
     Indication: Type 1 diabetes mellitus
     Route: 065
  11. NOVORAPID [Concomitant]
     Active Substance: INSULIN ASPART
     Indication: Type 1 diabetes mellitus
     Route: 065
  12. 17 BETA-ESTRADIOL [Concomitant]
     Route: 065
  13. 17 BETA-ESTRADIOL [Concomitant]
     Route: 065
  14. DYDROGESTERONE [Concomitant]
     Active Substance: DYDROGESTERONE
     Route: 065

REACTIONS (10)
  - Helicobacter infection [Unknown]
  - Oesophagitis [Unknown]
  - Hyperglycaemia [Recovered/Resolved]
  - Ketonuria [Recovered/Resolved]
  - Insulin resistance [Recovered/Resolved]
  - Educational problem [Unknown]
  - Increased appetite [Unknown]
  - Emotional disorder [Unknown]
  - Hypertension [Unknown]
  - Therapeutic product effect decreased [Unknown]
